FAERS Safety Report 20305760 (Version 2)
Quarter: 2022Q1

REPORT INFORMATION
  Report Type: Report from Study
  Country: US (occurrence: US)
  Receive Date: 20220106
  Receipt Date: 20220208
  Transmission Date: 20220423
  Serious: No
  Sender: FDA-Public Use
  Company Number: US-Ipsen Biopharmaceuticals, Inc.-2021-33293

PATIENT
  Age: 58 Year
  Sex: Female

DRUGS (1)
  1. SOMATULINE DEPOT [Suspect]
     Active Substance: LANREOTIDE ACETATE
     Indication: Product used for unknown indication
     Route: 065
     Dates: start: 202104

REACTIONS (2)
  - Influenza [Recovered/Resolved]
  - Exposure to SARS-CoV-2 [Recovered/Resolved]

NARRATIVE: CASE EVENT DATE: 20210101
